FAERS Safety Report 11559201 (Version 2)
Quarter: 2015Q4

REPORT INFORMATION
  Report Type: Other
  Country: DE (occurrence: DE)
  Receive Date: 20150928
  Receipt Date: 20151014
  Transmission Date: 20160304
  Serious: Yes (Other)
  Sender: FDA-Public Use
  Company Number: DE-MYLANLABS-2015M1031335

PATIENT

DRUGS (2)
  1. GABAPENTIN. [Suspect]
     Active Substance: GABAPENTIN
     Indication: HERPES ZOSTER
     Dosage: 1 DF, BID (DAILY DOSE: 2 DF DOSAGE FORM EVERY DAY )
     Route: 048
     Dates: start: 20150504, end: 20150629
  2. GABAPENTIN. [Suspect]
     Active Substance: GABAPENTIN
     Dosage: 1 DF, BID (DAILY DOSE: 2 DF DOSAGE FORM EVERY DAY   )
     Dates: start: 20150630, end: 20150812

REACTIONS (15)
  - Pruritus [Unknown]
  - Myalgia [Unknown]
  - Dizziness [Unknown]
  - Ear infection [Unknown]
  - Respiratory tract infection [Unknown]
  - Rash [Unknown]
  - Constipation [Unknown]
  - Weight decreased [Recovered/Resolved]
  - Asthenia [Unknown]
  - Coordination abnormal [Unknown]
  - Decreased appetite [Unknown]
  - Epistaxis [Recovered/Resolved]
  - Fatigue [Unknown]
  - Movement disorder [Unknown]
  - Headache [Recovered/Resolved]

NARRATIVE: CASE EVENT DATE: 201508
